FAERS Safety Report 25732845 (Version 5)
Quarter: 2025Q4

REPORT INFORMATION
  Report Type: Report from Study
  Country: JP (occurrence: JP)
  Receive Date: 20250828
  Receipt Date: 20251022
  Transmission Date: 20260117
  Serious: Yes (Hospitalization, Other)
  Sender: ABBVIE
  Company Number: JP-TAKEDA-2025TJP008572

PATIENT
  Age: 65 Year
  Sex: Male
  Weight: 60 kg

DRUGS (20)
  1. LEUPROLIDE ACETATE [Suspect]
     Active Substance: LEUPROLIDE ACETATE
     Indication: Bulbospinal muscular atrophy congenital
     Dosage: 11.25 MILLIGRAM, Q3MONTHS
     Route: 058
     Dates: start: 20171023
  2. TAURINE [Concomitant]
     Active Substance: TAURINE
     Indication: Bulbospinal muscular atrophy congenital
     Dosage: 3 GRAM
  3. Quercus salicina extract [Concomitant]
     Indication: Ureterolithiasis
     Dosage: 225 MILLIGRAM
     Dates: start: 20190816, end: 20210209
  4. TOCOPHERYL NICOTINATE [Concomitant]
     Active Substance: TOCOPHERYL NICOTINATE, D-.ALPHA.
     Indication: Bulbospinal muscular atrophy congenital
     Dosage: 300 MILLIGRAM
  5. Posterisan [Concomitant]
     Indication: Haemorrhoids
     Dosage: 2 GRAM
     Dates: start: 20220807
  6. URAPIDIL [Concomitant]
     Active Substance: URAPIDIL
     Indication: Neurogenic bladder
     Dosage: 30 MILLIGRAM
     Dates: start: 20220107
  7. URAPIDIL [Concomitant]
     Active Substance: URAPIDIL
     Indication: Neurogenic bladder
     Dosage: 30 MILLIGRAM
     Dates: start: 20211210, end: 20220106
  8. AMPICILLIN SODIUM\SULBACTAM SODIUM [Concomitant]
     Active Substance: AMPICILLIN SODIUM\SULBACTAM SODIUM
     Indication: Product used for unknown indication
     Dosage: 6 GRAM, QD
     Dates: start: 20210828, end: 20210903
  9. TELMISARTAN [Concomitant]
     Active Substance: TELMISARTAN
     Indication: Product used for unknown indication
     Dosage: 20 MILLIGRAM
     Route: 065
  10. DISTIGMINE BROMIDE [Concomitant]
     Active Substance: DISTIGMINE BROMIDE
     Indication: Neurogenic bladder
     Dosage: 5 MILLIGRAM
     Dates: start: 20211014, end: 20211209
  11. MAGNESIUM OXIDE [Concomitant]
     Active Substance: MAGNESIUM OXIDE
     Indication: Constipation
     Dosage: 990 MILLIGRAM
     Route: 048
     Dates: start: 20200807
  12. LANSOPRAZOLE [Concomitant]
     Active Substance: LANSOPRAZOLE
     Indication: Gastrooesophageal reflux disease
     Dosage: 30 MILLIGRAM
  13. METHYLCOBALAMIN [Concomitant]
     Active Substance: METHYLCOBALAMIN
     Indication: Bulbospinal muscular atrophy congenital
     Dosage: 1.5 MILLIGRAM
  14. Ambroxol hydrochloride od [Concomitant]
     Indication: Bulbospinal muscular atrophy congenital
     Dosage: 45 MILLIGRAM
     Dates: start: 20211022
  15. DIAZEPAM [Concomitant]
     Active Substance: DIAZEPAM
     Indication: Bulbospinal muscular atrophy congenital
     Dosage: 6 MILLIGRAM
  16. REBAMIPIDE [Concomitant]
     Active Substance: REBAMIPIDE
     Indication: Gastrooesophageal reflux disease
     Dosage: 300 MILLIGRAM
  17. TAMSULOSIN HYDROCHLORIDE [Concomitant]
     Active Substance: TAMSULOSIN HYDROCHLORIDE
     Indication: Benign prostatic hyperplasia
     Dosage: 0.28 MILLIGRAM
     Dates: start: 20210210, end: 20210225
  18. CEFTRIAXONE SODIUM [Concomitant]
     Active Substance: CEFTRIAXONE SODIUM
     Indication: Product used for unknown indication
     Dosage: 4 GRAM, QD
     Dates: start: 20201110, end: 20201116
  19. CEFTRIAXONE SODIUM [Concomitant]
     Active Substance: CEFTRIAXONE SODIUM
     Indication: Product used for unknown indication
     Dosage: 4 GRAM, QD
     Dates: start: 20190710, end: 20190718
  20. CEFTRIAXONE SODIUM [Concomitant]
     Active Substance: CEFTRIAXONE SODIUM
     Indication: Product used for unknown indication
     Dosage: 4 GRAM, QD
     Dates: start: 20190826, end: 20190903

REACTIONS (11)
  - Diffuse large B-cell lymphoma [Not Recovered/Not Resolved]
  - Diabetes mellitus [Not Recovered/Not Resolved]
  - Pneumonia [Recovered/Resolved]
  - Pneumonia [Recovered/Resolved]
  - Pneumonia [Recovered/Resolved]
  - Pneumonia [Recovered/Resolved]
  - Ureterolithiasis [Recovered/Resolved]
  - Haemorrhoids [Not Recovered/Not Resolved]
  - Benign prostatic hyperplasia [Recovered/Resolved]
  - Constipation [Not Recovered/Not Resolved]
  - Neurogenic bladder [Not Recovered/Not Resolved]

NARRATIVE: CASE EVENT DATE: 20190710
